FAERS Safety Report 7231146-0 (Version None)
Quarter: 2011Q1

REPORT INFORMATION
  Report Type: 
  Country: None (occurrence: None)
  Receive Date: 20110118
  Receipt Date: 20110103
  Transmission Date: 20110831
  Serious: Yes (Hospitalization, Congenital Anomaly)
  Sender: FDA-Public Use
  Company Number: A0669269A

PATIENT
  Sex: Male
  Weight: 4.1 kg

DRUGS (4)
  1. PAXIL [Suspect]
     Indication: ANXIETY
     Dosage: 40MG PER DAY
     Dates: start: 20021101, end: 20030601
  2. PRENATAL VITAMINS [Concomitant]
     Dates: start: 20030301, end: 20031201
  3. FLEXERIL [Concomitant]
     Dates: start: 20030326
  4. NAPROSYN [Concomitant]
     Dates: start: 20030326

REACTIONS (25)
  - TRANSPOSITION OF THE GREAT VESSELS [None]
  - COARCTATION OF THE AORTA [None]
  - MITRAL VALVE DISEASE [None]
  - CYANOSIS [None]
  - CARDIOMEGALY [None]
  - CARDIAC MURMUR [None]
  - CONDUCTION DISORDER [None]
  - MITRAL VALVE INCOMPETENCE [None]
  - AORTA HYPOPLASIA [None]
  - HEART VALVE INCOMPETENCE [None]
  - DEXTROCARDIA [None]
  - LEFT VENTRICULAR HYPERTROPHY [None]
  - PATENT DUCTUS ARTERIOSUS [None]
  - DANDY-WALKER SYNDROME [None]
  - DRUG EXPOSURE DURING PREGNANCY [None]
  - CONGENITAL TRICUSPID VALVE ATRESIA [None]
  - AORTIC VALVE INCOMPETENCE [None]
  - PNEUMOTHORAX [None]
  - FOETAL MACROSOMIA [None]
  - DILATATION ATRIAL [None]
  - VENTRICULAR SEPTAL DEFECT [None]
  - HYPOXIA [None]
  - BRADYCARDIA [None]
  - VENTRICULAR HYPOPLASIA [None]
  - STRIDOR [None]
